FAERS Safety Report 20793511 (Version 2)
Quarter: 2022Q2

REPORT INFORMATION
  Report Type: Spontaneous
  Country: US (occurrence: US)
  Receive Date: 20220506
  Receipt Date: 20220526
  Transmission Date: 20220720
  Serious: Yes (Other)
  Sender: FDA-Public Use
  Company Number: US-BRISTOL-MYERS SQUIBB COMPANY-2022-030731

PATIENT
  Age: 81 Year
  Sex: Female

DRUGS (1)
  1. REVLIMID [Suspect]
     Active Substance: LENALIDOMIDE
     Indication: Product used for unknown indication
     Dosage: TAKE 1 CAPSULE  BY MOUTH EVERY DAY ON DAYS 1-21 OUT OF 28 DAYS
     Route: 048

REACTIONS (2)
  - Neuralgia [Recovered/Resolved]
  - Dementia Alzheimer^s type [Unknown]
